FAERS Safety Report 8891374 (Version 1)
Quarter: 2012Q4

REPORT INFORMATION
  Report Type: Spontaneous
  Country: US (occurrence: None)
  Receive Date: 20121105
  Receipt Date: 20121105
  Transmission Date: 20130627
  Serious: Yes (Life-Threatening, Hospitalization)
  Sender: FDA-Public Use
  Company Number: None

PATIENT
  Age: 55 Year
  Sex: Female
  Weight: 93 kg

DRUGS (1)
  1. MULTIHANCE [Suspect]
     Indication: MRI
     Route: 042

REACTIONS (4)
  - Cough [None]
  - Vomiting [None]
  - Unresponsive to stimuli [None]
  - Cardio-respiratory arrest [None]
